FAERS Safety Report 6793447-X (Version None)
Quarter: 2010Q2

REPORT INFORMATION
  Report Type: 
  Country: None (occurrence: None)
  Receive Date: 20100624
  Receipt Date: 20100311
  Transmission Date: 20101027
  Serious: Yes (Other)
  Sender: FDA-Public Use
  Company Number: US-MYLANLABS-2010S1004372

PATIENT
  Age: 57 Year
  Sex: Female

DRUGS (11)
  1. CLOZAPINE [Suspect]
     Indication: PSYCHOTIC DISORDER
     Route: 048
     Dates: end: 20100310
  2. INVEGA /05724801/ [Concomitant]
  3. COMPAZINE [Concomitant]
  4. PERCOCET [Concomitant]
  5. DEPAKOTE ER [Concomitant]
  6. OXYBUTIN [Concomitant]
  7. POTASSIUM [Concomitant]
  8. OMEPRAZOLE [Concomitant]
  9. LORAZEPAM [Concomitant]
  10. HCTZ [Concomitant]
  11. CRESTOR [Concomitant]

REACTIONS (2)
  - GRANULOCYTOPENIA [None]
  - LEUKOPENIA [None]
